FAERS Safety Report 6819384-X (Version None)
Quarter: 2010Q3

REPORT INFORMATION
  Report Type: 
  Country: None (occurrence: None)
  Receive Date: 20100707
  Receipt Date: 20100625
  Transmission Date: 20110219
  Serious: Yes (Death)
  Sender: FDA-Public Use
  Company Number: JP-PFIZER INC-2009245237

PATIENT
  Age: 61 Year
  Sex: Female
  Weight: 41.5 kg

DRUGS (9)
  1. REVATIO [Suspect]
     Indication: PULMONARY ARTERIAL HYPERTENSION
     Dosage: 20 MG, 2X/DAY
     Route: 048
     Dates: start: 20090604, end: 20090615
  2. DIGOSIN [Concomitant]
     Dosage: UNK
     Route: 048
     Dates: end: 20090611
  3. WARFARIN POTASSIUM [Concomitant]
     Dosage: UNK
     Route: 048
     Dates: end: 20090616
  4. ALLOPURINOL [Concomitant]
     Dosage: UNK
     Route: 048
     Dates: end: 20090616
  5. FUROSEMID [Concomitant]
     Dosage: UNK
     Route: 048
     Dates: end: 20090616
  6. ALDACTAZIDE-A [Concomitant]
     Dosage: UNK
     Route: 048
     Dates: end: 20090616
  7. BERAPROST SODIUM [Concomitant]
     Indication: PULMONARY ARTERIAL HYPERTENSION
     Dosage: UNK
     Route: 048
     Dates: start: 20080707, end: 20090616
  8. PARIET [Concomitant]
     Dosage: UNK
     Route: 048
     Dates: end: 20090616
  9. TRACLEER [Concomitant]
     Indication: PULMONARY ARTERIAL HYPERTENSION
     Dosage: UNK
     Route: 048
     Dates: start: 20090101, end: 20090616

REACTIONS (2)
  - CARDIAC FAILURE CONGESTIVE [None]
  - HEADACHE [None]
